FAERS Safety Report 9404692 (Version 1)
Quarter: 2013Q3

REPORT INFORMATION
  Report Type: Report from Study
  Country: NZ (occurrence: NZ)
  Receive Date: 20130717
  Receipt Date: 20130717
  Transmission Date: 20140515
  Serious: Yes (Other)
  Sender: FDA-Public Use
  Company Number: PHHY2013NZ075043

PATIENT
  Sex: 0

DRUGS (1)
  1. CLOZARIL [Suspect]

REACTIONS (2)
  - Respiratory tract infection [Unknown]
  - Salivary hypersecretion [Unknown]
